FAERS Safety Report 5131577-9 (Version None)
Quarter: 2006Q4

REPORT INFORMATION
  Report Type: 
  Country: None (occurrence: None)
  Receive Date: 20061020
  Receipt Date: 20061010
  Transmission Date: 20070319
  Serious: Yes (Other)
  Sender: FDA-Public Use
  Company Number: PHEH2006US12757

PATIENT
  Age: 52 Year
  Sex: Male

DRUGS (7)
  1. ZOMETA [Suspect]
  2. NEPHROCAPS [Concomitant]
     Dosage: ONE QD
  3. TUMS [Concomitant]
     Dosage: UNK, TID
  4. PERSANTINE [Concomitant]
     Dosage: 75 MG, BID
  5. DECADRON [Concomitant]
  6. PREVACID [Concomitant]
     Dosage: 30 MG, QD
  7. THALIDOMIDE [Concomitant]
     Dosage: 200 MG, QD

REACTIONS (7)
  - BONE DISORDER [None]
  - IMPAIRED HEALING [None]
  - ORAL SOFT TISSUE DISORDER [None]
  - OSTEONECROSIS [None]
  - SWELLING [None]
  - TOOTH ABSCESS [None]
  - TOOTH EXTRACTION [None]
